FAERS Safety Report 9621297 (Version 1)
Quarter: 2013Q4

REPORT INFORMATION
  Report Type: Spontaneous
  Country: US (occurrence: None)
  Receive Date: 20131011
  Receipt Date: 20131011
  Transmission Date: 20140711
  Serious: Yes (Life-Threatening, Hospitalization)
  Sender: FDA-Public Use
  Company Number: None

PATIENT
  Age: 14 Year
  Sex: Male
  Weight: 107 kg

DRUGS (6)
  1. ROMIPLOSTIM [Suspect]
     Indication: EVANS SYNDROME
  2. LISINOPRIL [Concomitant]
  3. FES04 [Concomitant]
  4. FOLIC ACID [Concomitant]
  5. PCN VK [Concomitant]
  6. PREDNISONE [Concomitant]

REACTIONS (6)
  - Pain in extremity [None]
  - Paraesthesia [None]
  - Thrombosis [None]
  - Peripheral arterial occlusive disease [None]
  - Peripheral arterial occlusive disease [None]
  - Arterial occlusive disease [None]
